FAERS Safety Report 6745160-2 (Version None)
Quarter: 2010Q2

REPORT INFORMATION
  Report Type: 
  Country: None (occurrence: None)
  Receive Date: 20100526
  Receipt Date: 20100510
  Transmission Date: 20101027
  Serious: Yes (Hospitalization)
  Sender: FDA-Public Use
  Company Number: APP201000494

PATIENT
  Age: 81 Year
  Sex: Female
  Weight: 98 kg

DRUGS (17)
  1. FLUOROURACIL [Suspect]
     Indication: ADENOCARCINOMA
     Dosage: 800 MG, INTRAVENOUS BOLUS; 4800 MG, INFUSION LASTED FOR 3 DAYS, INTRAVENOUS
     Route: 040
     Dates: start: 20080205, end: 20080207
  2. FLUOROURACIL [Suspect]
     Indication: METASTASES TO LUNG
     Dosage: 800 MG, INTRAVENOUS BOLUS; 4800 MG, INFUSION LASTED FOR 3 DAYS, INTRAVENOUS
     Route: 040
     Dates: start: 20080205, end: 20080207
  3. FLUOROURACIL [Suspect]
     Indication: PERITONEAL CARCINOMA METASTATIC
     Dosage: 800 MG, INTRAVENOUS BOLUS; 4800 MG, INFUSION LASTED FOR 3 DAYS, INTRAVENOUS
     Route: 040
     Dates: start: 20080205, end: 20080207
  4. FLUOROURACIL [Suspect]
     Indication: ADENOCARCINOMA
     Dosage: 800 MG, INTRAVENOUS BOLUS; 4800 MG, INFUSION LASTED FOR 3 DAYS, INTRAVENOUS
     Route: 040
     Dates: start: 20080205
  5. FLUOROURACIL [Suspect]
     Indication: METASTASES TO LUNG
     Dosage: 800 MG, INTRAVENOUS BOLUS; 4800 MG, INFUSION LASTED FOR 3 DAYS, INTRAVENOUS
     Route: 040
     Dates: start: 20080205
  6. FLUOROURACIL [Suspect]
     Indication: PERITONEAL CARCINOMA METASTATIC
     Dosage: 800 MG, INTRAVENOUS BOLUS; 4800 MG, INFUSION LASTED FOR 3 DAYS, INTRAVENOUS
     Route: 040
     Dates: start: 20080205
  7. IRINOTECAN HCL [Suspect]
     Indication: COLON CANCER
     Dosage: 800 MG
     Dates: start: 20080205, end: 20080205
  8. IRINOTECAN HCL [Suspect]
     Indication: METASTASES TO LUNG
     Dosage: 800 MG
     Dates: start: 20080205, end: 20080205
  9. IRINOTECAN HCL [Suspect]
     Indication: PERITONEAL CARCINOMA METASTATIC
     Dosage: 800 MG
     Dates: start: 20080205, end: 20080205
  10. FOLINIC ACID [Concomitant]
  11. METOCLOPRAMIDE [Concomitant]
  12. BISOPROLOL FUMARATE [Concomitant]
  13. LANSOPRAZOLE [Concomitant]
  14. TETRAZEPAM [Concomitant]
  15. FUROSEMIDE [Concomitant]
  16. BROMAZEPAM [Concomitant]
  17. AMIODARONE HYDROCHLORIDE [Concomitant]

REACTIONS (3)
  - CARDIAC FAILURE CONGESTIVE [None]
  - PROTHROMBIN TIME PROLONGED [None]
  - PULMONARY EMBOLISM [None]
